FAERS Safety Report 6266935-2 (Version None)
Quarter: 2009Q3

REPORT INFORMATION
  Report Type: 
  Country: None (occurrence: None)
  Receive Date: 20090710
  Receipt Date: 20090710
  Transmission Date: 20100115
  Serious: Yes (Hospitalization)
  Sender: FDA-Public Use
  Company Number: None

PATIENT
  Age: 50 Year
  Sex: Female
  Weight: 101.6057 kg

DRUGS (2)
  1. SORAFENIB [Suspect]
     Indication: MALIGNANT GLIOMA
     Dosage: 400 MG BID
     Dates: start: 20090505, end: 20090618
  2. TEMODAR [Suspect]
     Dosage: 73 MG BID
     Dates: start: 20090505, end: 20090618

REACTIONS (4)
  - HEADACHE [None]
  - LYMPHOCYTE COUNT INCREASED [None]
  - RASH [None]
  - SWELLING FACE [None]
